FAERS Safety Report 7621438-5 (Version None)
Quarter: 2011Q3

REPORT INFORMATION
  Report Type: 
  Country: None (occurrence: None)
  Receive Date: 20110719
  Receipt Date: 20101118
  Transmission Date: 20111222
  Serious: No
  Sender: FDA-Public Use
  Company Number: US-MYLANLABS-2010S1020274

PATIENT
  Age: 65 Year
  Sex: Female
  Weight: 108.86 kg

DRUGS (6)
  1. COLCHICINE [Concomitant]
     Indication: GOUT
     Dosage: USING 1/2 OF A 0.6MG TABLET PRN
     Dates: start: 20070101
  2. CHLORPROPAMIDE [Suspect]
     Indication: TYPE 2 DIABETES MELLITUS
     Route: 048
     Dates: start: 20080101
  3. COZAAR [Concomitant]
     Indication: BLOOD PRESSURE INCREASED
  4. MECLIZINE [Concomitant]
     Indication: VERTIGO
     Dosage: USING 1/2 OF A 20MG TABLET PRN
  5. IBUPROFEN (ADVIL) [Concomitant]
     Indication: BACK PAIN
  6. FUROSEMIDE [Concomitant]
     Indication: BLOOD PRESSURE INCREASED
     Dates: start: 20100601

REACTIONS (5)
  - TONGUE DISCOLOURATION [None]
  - DRUG EFFECT DECREASED [None]
  - BLOOD GLUCOSE INCREASED [None]
  - SKIN DISCOLOURATION [None]
  - RASH [None]
